FAERS Safety Report 21565861 (Version 1)
Quarter: 2022Q4

REPORT INFORMATION
  Report Type: Report from Study
  Country: US (occurrence: US)
  Receive Date: 20221108
  Receipt Date: 20221108
  Transmission Date: 20230113
  Serious: Yes (Other)
  Sender: FDA-Public Use
  Company Number: US-MYLANLABS-202200010254

PATIENT
  Sex: Female

DRUGS (2)
  1. LYRICA [Suspect]
     Active Substance: PREGABALIN
     Indication: Pain in extremity
     Dosage: TAKE 2 CAPSULE (150MG) BY MOUTH EVERY MORNING AND 3 CAPSULES (225MG) AFTER DINNER
     Route: 048
  2. LYRICA [Suspect]
     Active Substance: PREGABALIN
     Indication: Arthralgia
     Dosage: 75 MILLIGRAM
     Route: 048

REACTIONS (2)
  - Autism spectrum disorder [Unknown]
  - Off label use [Unknown]
